FAERS Safety Report 16330309 (Version 5)
Quarter: 2019Q3

REPORT INFORMATION
  Report Type: Spontaneous
  Country: JP (occurrence: JP)
  Receive Date: 20190520
  Receipt Date: 20190708
  Transmission Date: 20191004
  Serious: Yes (Life-Threatening, Hospitalization, Other)
  Sender: FDA-Public Use
  Company Number: JP-ABBVIE-19P-087-2789505-00

PATIENT
  Age: 39 Year
  Sex: Female

DRUGS (2)
  1. MYSLEE [Concomitant]
     Active Substance: ZOLPIDEM TARTRATE
     Indication: PRODUCT USED FOR UNKNOWN INDICATION
     Dosage: UNK
     Route: 065
  2. LEUPRORELIN ACETATE [Suspect]
     Active Substance: LEUPROLIDE ACETATE
     Indication: ENDOMETRIOSIS
     Route: 058
     Dates: start: 201901

REACTIONS (3)
  - Interstitial lung disease [Unknown]
  - Cough [Recovered/Resolved]
  - Pulmonary pain [Recovered/Resolved]

NARRATIVE: CASE EVENT DATE: 2019
